FAERS Safety Report 8016200-8 (Version None)
Quarter: 2011Q4

REPORT INFORMATION
  Report Type: 
  Country: None (occurrence: None)
  Receive Date: 20111230
  Receipt Date: 20111223
  Transmission Date: 20120403
  Serious: Yes (Other)
  Sender: FDA-Public Use
  Company Number: US-AMGEN-USASP2011065291

PATIENT
  Age: 48 Year
  Sex: Female

DRUGS (3)
  1. HORMONES [Concomitant]
     Dosage: UNK
  2. ENBREL [Suspect]
     Indication: PSORIATIC ARTHROPATHY
     Dosage: 50 MG, 2 TIMES/WK
     Route: 058
     Dates: start: 20111115
  3. ENBREL [Suspect]
     Indication: PSORIASIS

REACTIONS (12)
  - HAEMORRHOIDAL HAEMORRHAGE [None]
  - INJECTION SITE ERYTHEMA [None]
  - INJECTION SITE REACTION [None]
  - CHILLS [None]
  - INJECTION SITE WARMTH [None]
  - INJECTION SITE SWELLING [None]
  - CONSTIPATION [None]
  - INJECTION SITE HAEMATOMA [None]
  - PYREXIA [None]
  - INJECTION SITE PRURITUS [None]
  - WEIGHT INCREASED [None]
  - INJECTION SITE PAIN [None]
